FAERS Safety Report 8524011 (Version 4)
Quarter: 2012Q4

REPORT INFORMATION
  Report Type: Report from Study
  Country: US (occurrence: US)
  Receive Date: 20120420
  Receipt Date: 20120920
  Transmission Date: 20130627
  Serious: Yes (Death)
  Sender: FDA-Public Use
  Company Number: US-ROCHE-624227

PATIENT
  Age: 63 Year
  Sex: Female
  Weight: 71 kg

DRUGS (15)
  1. AVASTIN [Suspect]
     Indication: BREAST CANCER
     Dosage: FORM: VIALS, DOSE LEVEL :15 MG/KG
     Route: 042
     Dates: start: 20090317, end: 20090327
  2. HERCEPTIN [Suspect]
     Indication: BREAST CANCER
     Dosage: FORM: VIALS;DOSE LEVEL : 8MG/KG, PERMANENTLY DISCONTINUED
     Route: 042
     Dates: start: 20090317, end: 20090327
  3. CARBOPLATIN [Suspect]
     Indication: BREAST CANCER
     Dosage: DOSAGE REPORTED AS 6 AUC AND FORM: VIALS, PERMANENTLY DISCONTINUED
     Route: 042
     Dates: start: 20090317, end: 20090327
  4. DOCETAXEL [Suspect]
     Indication: BREAST CANCER
     Dosage: FORM: VIALS; DOSE LEVEL : 75 MG/M2 PERMANENTLY DISCONTINUED
     Route: 042
     Dates: start: 20090317, end: 20090327
  5. IMITREX [Concomitant]
  6. INDERAL [Concomitant]
  7. ELAVIL [Concomitant]
  8. ZANTAC [Concomitant]
  9. ALLEGRA [Concomitant]
  10. FIORICET [Concomitant]
  11. TYLENOL [Concomitant]
  12. DONNATAL [Concomitant]
  13. ADVAIR [Concomitant]
  14. RETIN-A [Concomitant]
  15. CLINDAMYCIN [Concomitant]

REACTIONS (2)
  - Cardio-respiratory arrest [Fatal]
  - Neutropenic sepsis [Fatal]
